FAERS Safety Report 5671873-X (Version None)
Quarter: 2008Q1

REPORT INFORMATION
  Report Type: 
  Country: None (occurrence: None)
  Receive Date: 20080317
  Receipt Date: 20080317
  Transmission Date: 20080703
  Serious: Yes (Other)
  Sender: FDA-Public Use
  Company Number: None

PATIENT
  Age: 56 Year
  Sex: Female
  Weight: 68.0396 kg

DRUGS (1)
  1. FOSAMAX [Suspect]
     Indication: OSTEOPOROSIS
     Dosage: 1 TABLET  1 PER WEEK PO
     Route: 048
     Dates: start: 20061119, end: 20070530

REACTIONS (2)
  - CHEST PAIN [None]
  - OESOPHAGEAL DISORDER [None]
